FAERS Safety Report 9387402 (Version 1)
Quarter: 2013Q3

REPORT INFORMATION
  Report Type: Spontaneous
  Country: US (occurrence: None)
  Receive Date: 20130703
  Receipt Date: 20130703
  Transmission Date: 20140515
  Serious: Yes (Life-Threatening)
  Sender: FDA-Public Use
  Company Number: None

PATIENT
  Age: 51 Year
  Sex: Male
  Weight: 95.26 kg

DRUGS (3)
  1. OXYCODONE [Suspect]
     Indication: BACK PAIN
     Dosage: 30 M. 1 EVERY 4 HOURS
     Dates: start: 20130603
  2. OXYCODONE [Suspect]
     Indication: NECK PAIN
     Dosage: 30 M. 1 EVERY 4 HOURS
     Dates: start: 20130603
  3. OXYCODONE RX [Concomitant]

REACTIONS (6)
  - Dyspnoea [None]
  - Chest pain [None]
  - Tremor [None]
  - Vomiting [None]
  - Drug ineffective [None]
  - Product quality issue [None]
